FAERS Safety Report 7709951-3 (Version None)
Quarter: 2011Q3

REPORT INFORMATION
  Report Type: 
  Country: None (occurrence: None)
  Receive Date: 20110825
  Receipt Date: 20110818
  Transmission Date: 20111222
  Serious: Yes (Death)
  Sender: FDA-Public Use
  Company Number: US-CELGENEUS-163-21880-11080273

PATIENT
  Sex: Male
  Weight: 97.156 kg

DRUGS (5)
  1. CYTOXAN [Concomitant]
     Dosage: 2275 MILLIGRAM
     Route: 041
     Dates: start: 20110603, end: 20110624
  2. VELCADE [Concomitant]
     Indication: MULTIPLE MYELOMA
     Dosage: 2.8 MILLIGRAM
     Route: 041
     Dates: start: 20110114, end: 20110707
  3. DEXAMETHASONE [Concomitant]
     Indication: MULTIPLE MYELOMA
     Dosage: 20 MILLIGRAM
     Route: 048
     Dates: start: 20110114, end: 20110717
  4. REVLIMID [Suspect]
     Dosage: 25 MILLIGRAM
     Route: 048
     Dates: start: 20110114, end: 20110717
  5. DOXIL [Concomitant]
     Indication: MULTIPLE MYELOMA
     Dosage: 63 MILLIGRAM
     Route: 041
     Dates: start: 20110324, end: 20110523

REACTIONS (2)
  - MULTIPLE MYELOMA [None]
  - CARDIAC ARREST [None]
